FAERS Safety Report 26201878 (Version 1)
Quarter: 2025Q4

REPORT INFORMATION
  Report Type: Other
  Country: EU (occurrence: EU)
  Receive Date: 20251226
  Receipt Date: 20251226
  Transmission Date: 20260117
  Serious: Yes (Hospitalization)
  Sender: ZYDUS PHARM
  Company Number: None

PATIENT

DRUGS (4)
  1. BISOPROLOL [Suspect]
     Active Substance: BISOPROLOL
     Indication: Cardiac failure
     Dosage: 2.5 MILLIGRAM DAILY
     Route: 048
     Dates: start: 2022, end: 20251116
  2. EPLERENONE [Suspect]
     Active Substance: EPLERENONE
     Indication: Cardiac failure
     Dosage: 25 MILLIGRAM DAILY
     Route: 048
     Dates: start: 2022, end: 20251116
  3. ENTRESTO [Suspect]
     Active Substance: SACUBITRIL\VALSARTAN
     Indication: Cardiac failure
     Dosage: 25 MILLIGRAM DAILY
     Route: 048
     Dates: start: 2022, end: 20251116
  4. FLUINDIONE [Concomitant]
     Active Substance: FLUINDIONE
     Indication: Cardiovascular event prophylaxis
     Dosage: 5 MILLIGRAM EVERY 3 DAYS
     Route: 048

REACTIONS (1)
  - Vasoplegia syndrome [Recovering/Resolving]

NARRATIVE: CASE EVENT DATE: 20251109
